FAERS Safety Report 14903428 (Version 1)
Quarter: 2018Q2

REPORT INFORMATION
  Report Type: Other
  Country: US (occurrence: US)
  Receive Date: 20180516
  Receipt Date: 20180516
  Transmission Date: 20180711
  Serious: Yes (Life-Threatening, Hospitalization, Other)
  Sender: FDA-Public Use
  Company Number: US-C B FLEET CO INC-201805-US-000940

PATIENT
  Age: 56 Year
  Sex: Female

DRUGS (1)
  1. BC (ASPIRIN\CAFFEINE) [Suspect]
     Active Substance: ASPIRIN\CAFFEINE
     Indication: ARTHRALGIA
     Route: 048

REACTIONS (2)
  - Incorrect drug administration duration [None]
  - Cerebral haemorrhage [Unknown]
